FAERS Safety Report 14855046 (Version 1)
Quarter: 2018Q2

REPORT INFORMATION
  Report Type: Report from Study
  Country: BD (occurrence: BD)
  Receive Date: 20180507
  Receipt Date: 20180507
  Transmission Date: 20180711
  Serious: Yes (Death)
  Sender: FDA-Public Use
  Company Number: PHHY2018BD003720

PATIENT
  Age: 52 Year
  Sex: Male
  Weight: 82 kg

DRUGS (1)
  1. VOTRIENT [Suspect]
     Active Substance: PAZOPANIB HYDROCHLORIDE
     Indication: RENAL CANCER
     Dosage: UNK
     Route: 048
     Dates: start: 20180323

REACTIONS (1)
  - Death [Fatal]

NARRATIVE: CASE EVENT DATE: 20180424
